FAERS Safety Report 23405748 (Version 1)
Quarter: 2024Q1

REPORT INFORMATION
  Report Type: Spontaneous
  Country: US (occurrence: None)
  Receive Date: 20240113
  Receipt Date: 20240113
  Transmission Date: 20240409
  Serious: Yes (Hospitalization)
  Sender: FDA-Public Use
  Company Number: None

PATIENT
  Age: 36 Year
  Sex: Male
  Weight: 61.7 kg

DRUGS (11)
  1. LOKELMA [Suspect]
     Active Substance: SODIUM ZIRCONIUM CYCLOSILICATE
     Indication: Blood potassium increased
     Dosage: FREQUENCY : TWICE A DAY;?
     Route: 048
     Dates: start: 20230216
  2. MYCOPHENOLATE MOFETIL [Suspect]
     Active Substance: MYCOPHENOLATE MOFETIL
     Dosage: FREQUENCY : TWICE A DAY;?
     Route: 048
     Dates: start: 20230422
  3. Escitalopram 10 [Concomitant]
  4. ALBUTEROL [Concomitant]
     Active Substance: ALBUTEROL
  5. Sodium Bicarbonate 10gr (650mg) [Concomitant]
  6. PREDNISONE [Concomitant]
     Active Substance: PREDNISONE
  7. FUROSEMIDE [Concomitant]
     Active Substance: FUROSEMIDE
  8. LOSARTAN [Concomitant]
     Active Substance: LOSARTAN
  9. AMLODIPINE [Concomitant]
     Active Substance: AMLODIPINE BESYLATE
  10. ENVARSUS XR [Concomitant]
     Active Substance: TACROLIMUS
  11. ENVARSUS XR [Concomitant]
     Active Substance: TACROLIMUS

REACTIONS (2)
  - Upper respiratory tract infection [None]
  - COVID-19 [None]

NARRATIVE: CASE EVENT DATE: 20231223
